FAERS Safety Report 10657393 (Version 1)
Quarter: 2014Q4

REPORT INFORMATION
  Report Type: Spontaneous
  Country: US (occurrence: US)
  Receive Date: 20141217
  Receipt Date: 20141217
  Transmission Date: 20150529
  Serious: Yes (Other)
  Sender: FDA-Public Use
  Company Number: US-JNJFOC-20141205583

PATIENT
  Sex: Male
  Weight: 73.48 kg

DRUGS (17)
  1. XARELTO [Suspect]
     Active Substance: RIVAROXABAN
     Indication: JOINT ARTHROPLASTY
     Route: 048
     Dates: start: 20140902
  2. PREDNISONE. [Concomitant]
     Active Substance: PREDNISONE
     Route: 065
  3. MONTELUKAST [Concomitant]
     Active Substance: MONTELUKAST SODIUM
     Route: 065
  4. ERGOCALCIFEROL. [Concomitant]
     Active Substance: ERGOCALCIFEROL
     Route: 065
  5. ALBUTEROL SULFATE. [Concomitant]
     Active Substance: ALBUTEROL SULFATE
     Route: 065
  6. FOLIC ACID. [Concomitant]
     Active Substance: FOLIC ACID
     Dosage: AS DIRECTED
     Route: 065
  7. TRAMADOL [Concomitant]
     Active Substance: TRAMADOL
     Dosage: 2 TABLETS AS NEEDED
     Route: 065
  8. ISOSORBIDE MONONITRATE. [Concomitant]
     Active Substance: ISOSORBIDE MONONITRATE
     Route: 065
  9. DOXEPIN [Concomitant]
     Active Substance: DOXEPIN
     Indication: SLEEP DISORDER
     Dosage: 1-3 CAPS
     Route: 065
  10. CLARITIN [Concomitant]
     Active Substance: LORATADINE
     Route: 065
  11. OMEPRAZOLE. [Concomitant]
     Active Substance: OMEPRAZOLE
     Route: 065
  12. METOPROLOL TARTRATE. [Concomitant]
     Active Substance: METOPROLOL TARTRATE
     Dosage: 1/2 TABLET BID
     Route: 065
  13. LEVALBUTEROL [Concomitant]
     Active Substance: LEVALBUTEROL
     Dosage: Q 6-8 H PM
     Route: 065
  14. CLOTRIMAZOLE/BETAMETHASONE [Concomitant]
     Dosage: APPLY TO AFFECTED AREA TWICE A DAY
     Route: 065
  15. HYDROCODONE-APAP [Concomitant]
     Active Substance: ACETAMINOPHEN\HYDROCODONE
     Dosage: 1 TAB BID PM
     Route: 065
  16. XARELTO [Suspect]
     Active Substance: RIVAROXABAN
     Indication: THROMBOSIS PROPHYLAXIS
     Route: 048
     Dates: start: 20140902
  17. NORVASC [Concomitant]
     Active Substance: AMLODIPINE BESYLATE
     Route: 065

REACTIONS (1)
  - Platelet count increased [Unknown]
